FAERS Safety Report 6804678-4 (Version None)
Quarter: 2010Q2

REPORT INFORMATION
  Report Type: 
  Country: None (occurrence: None)
  Receive Date: 20100628
  Receipt Date: 20070622
  Transmission Date: 20101027
  Serious: No
  Sender: FDA-Public Use
  Company Number: US-PFIZER INC-2007028258

PATIENT
  Sex: Female
  Weight: 18.14 kg

DRUGS (1)
  1. GENOTROPIN [Suspect]
     Indication: SILVER-RUSSELL SYNDROME
     Dates: start: 20061101

REACTIONS (2)
  - INJECTION SITE HAEMORRHAGE [None]
  - INJECTION SITE REACTION [None]
